FAERS Safety Report 25009754 (Version 3)
Quarter: 2025Q1

REPORT INFORMATION
  Report Type: Spontaneous
  Country: US (occurrence: US)
  Receive Date: 20250225
  Receipt Date: 20250326
  Transmission Date: 20250409
  Serious: No
  Sender: BRISTOL-MYERS SQUIBB COMPANY
  Company Number: US-BRISTOL-MYERS SQUIBB COMPANY-2025-021609

PATIENT
  Age: 76 Year
  Sex: Female

DRUGS (1)
  1. REVLIMID [Suspect]
     Active Substance: LENALIDOMIDE
     Indication: Plasma cell myeloma
     Route: 048

REACTIONS (8)
  - Myalgia [Unknown]
  - Intervertebral disc degeneration [Not Recovered/Not Resolved]
  - Diarrhoea [Unknown]
  - Hepatic enzyme abnormal [Unknown]
  - Product dose omission issue [Unknown]
  - Insurance issue [Unknown]
  - Therapy interrupted [Unknown]
  - Gastrointestinal motility disorder [Unknown]
